FAERS Safety Report 11182881 (Version 1)
Quarter: 2015Q2

REPORT INFORMATION
  Report Type: Report from Study
  Country: US (occurrence: US)
  Receive Date: 20150611
  Receipt Date: 20150611
  Transmission Date: 20150821
  Serious: No
  Sender: FDA-Public Use
  Company Number: US-CELGENEUS-USA-2015054556

PATIENT

DRUGS (6)
  1. REMICADE [Concomitant]
     Active Substance: INFLIXIMAB
     Indication: SARCOIDOSIS
     Route: 041
  2. PREDNISONE. [Suspect]
     Active Substance: PREDNISONE
     Indication: SARCOIDOSIS
     Dosage: 50 MILLIGRAM
     Route: 065
  3. THALOMID [Suspect]
     Active Substance: THALIDOMIDE
     Indication: OFF LABEL USE
  4. IMURAN [Concomitant]
     Active Substance: AZATHIOPRINE
     Indication: SARCOIDOSIS
     Route: 065
  5. THALOMID [Suspect]
     Active Substance: THALIDOMIDE
     Indication: SARCOIDOSIS
     Route: 048
  6. SOLU-MEDROL [Suspect]
     Active Substance: METHYLPREDNISOLONE SODIUM SUCCINATE
     Indication: SARCOIDOSIS
     Route: 041

REACTIONS (2)
  - Osteoporosis [Unknown]
  - Osteogenesis imperfecta [Unknown]
